FAERS Safety Report 4519995-0 (Version None)
Quarter: 2004Q4

REPORT INFORMATION
  Report Type: 
  Country: None (occurrence: None)
  Receive Date: 20041207
  Receipt Date: 20041202
  Transmission Date: 20050328
  Serious: Yes (Other)
  Sender: FDA-Public Use
  Company Number: US-JNJFOC-20041201121

PATIENT
  Age: 15 Year
  Sex: Male
  Weight: 36.29 kg

DRUGS (3)
  1. CONCERTA [Suspect]
     Route: 049
     Dates: start: 20000101
  2. LAMICTAL [Concomitant]
  3. SEROQUEL [Concomitant]

REACTIONS (1)
  - GROWTH RETARDATION [None]
